FAERS Safety Report 5827989-8 (Version None)
Quarter: 2008Q3

REPORT INFORMATION
  Report Type: 
  Country: None (occurrence: None)
  Receive Date: 20080728
  Receipt Date: 20080722
  Transmission Date: 20090109
  Serious: Yes (Other)
  Sender: FDA-Public Use
  Company Number: 080104

PATIENT
  Age: 69 Year
  Sex: Male
  Weight: 96.1626 kg

DRUGS (2)
  1. HALFLYTELY [Suspect]
     Indication: COLONOSCOPY
     Dosage: 10 MG, 1X, PO
     Route: 048
     Dates: start: 20080722
  2. AVALIDE [Concomitant]

REACTIONS (6)
  - BLOOD PRESSURE DECREASED [None]
  - COLD SWEAT [None]
  - FEELING COLD [None]
  - HYPOPHAGIA [None]
  - NAUSEA [None]
  - SYNCOPE [None]
